FAERS Safety Report 7370063-2 (Version None)
Quarter: 2011Q1

REPORT INFORMATION
  Report Type: 
  Country: None (occurrence: None)
  Receive Date: 20110323
  Receipt Date: 20110309
  Transmission Date: 20110831
  Serious: Yes (Other)
  Sender: FDA-Public Use
  Company Number: PHHY2011JP21717

PATIENT
  Age: 75 Year
  Sex: Female

DRUGS (21)
  1. NEORAL [Suspect]
     Dosage: 100 MG, UNK
     Dates: start: 20100702, end: 20100709
  2. VALTREX [Concomitant]
     Dosage: 500 MG, UNK
     Route: 048
     Dates: end: 20100517
  3. PRIMOBOLAN [Concomitant]
     Indication: APLASTIC ANAEMIA
     Dosage: 15 MG, UNK
     Route: 048
     Dates: start: 20100625
  4. CALCIUM POLYSTYRENE SULFONATE [Concomitant]
     Indication: HYPERKALAEMIA
     Dosage: 100 G, UNK
     Route: 048
     Dates: start: 20100122
  5. PREDONINE [Concomitant]
     Dosage: 5 MG, UNK
     Route: 048
     Dates: end: 20100610
  6. EXJADE [Suspect]
     Dosage: 500 MG, UNK
     Route: 048
     Dates: start: 20100417, end: 20100430
  7. GASTER D [Concomitant]
     Dosage: 40 MG, UNK
     Route: 048
     Dates: start: 20080617
  8. CRAVIT [Concomitant]
     Dosage: 500 MG, UNK
     Route: 048
     Dates: start: 20100507, end: 20100517
  9. GRAN [Concomitant]
     Indication: APLASTIC ANAEMIA
     Dosage: UNK
     Route: 058
     Dates: start: 20100605, end: 20100803
  10. EXJADE [Suspect]
     Indication: IRON OVERLOAD
     Dosage: 500 MG, UNK
     Route: 048
     Dates: start: 20100213, end: 20100401
  11. CALCIUM POLYSTYRENE SULFONATE [Concomitant]
     Dosage: 75 G, UNK
     Route: 048
  12. ADONA [Concomitant]
     Indication: APLASTIC ANAEMIA
     Dosage: 90 MG, UNK
     Route: 048
     Dates: start: 20100629, end: 20100827
  13. SOL-MELCORT [Concomitant]
     Dosage: 80 MG, UNK
     Dates: start: 20100511, end: 20100515
  14. AMLODIPINE [Concomitant]
     Indication: HYPERTENSION
     Dosage: 2.5 MG, UNK
     Route: 048
     Dates: start: 20080703
  15. PREDONINE [Concomitant]
     Dosage: 20 MG, UNK
     Route: 048
  16. NEORAL [Suspect]
     Indication: APLASTIC ANAEMIA
     Dosage: 175 MG, UNK
     Route: 048
     Dates: start: 20091029
  17. THYMOGLOBULIN [Suspect]
     Indication: APLASTIC ANAEMIA
     Dosage: 142.5 MG, UNK
     Dates: start: 20100511, end: 20100515
  18. DIOVAN [Concomitant]
     Indication: HYPERTENSION
     Dosage: 80 MG, UNK
     Route: 048
     Dates: start: 20090824
  19. VALTREX [Concomitant]
     Dosage: 1000 MG, UNK
     Route: 048
     Dates: start: 20100226
  20. DIFLUCAN [Concomitant]
     Dosage: 100 MG, UNK
     Route: 048
     Dates: start: 20100507, end: 20100517
  21. PREDONINE [Concomitant]
     Dosage: 40 MG, UNK
     Route: 048
     Dates: start: 20100521

REACTIONS (9)
  - ASPARTATE AMINOTRANSFERASE INCREASED [None]
  - ALANINE AMINOTRANSFERASE INCREASED [None]
  - ANAEMIA [None]
  - NEUTROPENIA [None]
  - NASOPHARYNGITIS [None]
  - BLOOD CREATININE INCREASED [None]
  - LEUKOPENIA [None]
  - ORAL HERPES [None]
  - BLOOD UREA INCREASED [None]
